FAERS Safety Report 5475351-2 (Version None)
Quarter: 2007Q4

REPORT INFORMATION
  Report Type: 
  Country: None (occurrence: None)
  Receive Date: 20071001
  Receipt Date: 20070925
  Transmission Date: 20080405
  Serious: Yes (Death, Hospitalization)
  Sender: FDA-Public Use
  Company Number: CLOF-10654

PATIENT
  Sex: Male

DRUGS (32)
  1. CLOFARABINE. MFR: GENZYME [Suspect]
     Indication: CHRONIC MYELOID LEUKAEMIA
     Dosage: 168.8 MG IV
     Route: 042
     Dates: start: 20061221, end: 20061224
  2. BUSULFAN [Suspect]
     Indication: CHRONIC MYELOID LEUKAEMIA
     Dosage: 877.5 MG IV
     Route: 042
     Dates: start: 20061221, end: 20061224
  3. FLUDARABINE PHOSPHATE [Suspect]
     Indication: CHRONIC MYELOID LEUKAEMIA
     Dosage: 168.8 MG IV
     Route: 042
     Dates: start: 20061221, end: 20061224
  4. ACTIGALL [Concomitant]
  5. AMLODIPINE BESYLATE [Concomitant]
  6. BACTRIM [Concomitant]
  7. BUDESONIDE [Concomitant]
  8. CIPRO [Concomitant]
  9. CLARITIN [Concomitant]
  10. COREG [Concomitant]
  11. DIOVAN [Concomitant]
  12. EMOLLIENT [Concomitant]
  13. FOLIC ACID [Concomitant]
  14. HYDRALAZINE HCL [Concomitant]
  15. HYDROCORTISONE [Concomitant]
  16. IMODIUM [Concomitant]
  17. REGULAR INSULIN [Concomitant]
  18. LEVSIN [Concomitant]
  19. MAGNESIUM OXIDE [Concomitant]
  20. METHYLPREDNISOLONE [Concomitant]
  21. NEXIUM [Concomitant]
  22. NORVASC [Concomitant]
  23. PREDNISOLONE [Concomitant]
  24. PROPOXYPHENE HCL [Concomitant]
  25. REFRESH [Concomitant]
  26. RESTASIS [Concomitant]
  27. SIMETHICONE [Concomitant]
  28. TACROLIMUS [Concomitant]
  29. TRIAMCINOLONE [Concomitant]
  30. VALCYTE [Concomitant]
  31. VALTREX [Concomitant]
  32. ZOFRAN [Concomitant]

REACTIONS (12)
  - ACUTE GRAFT VERSUS HOST DISEASE IN INTESTINE [None]
  - ACUTE GRAFT VERSUS HOST DISEASE IN LIVER [None]
  - ACUTE GRAFT VERSUS HOST DISEASE IN SKIN [None]
  - BACTERAEMIA [None]
  - BRAIN OEDEMA [None]
  - CARDIAC ARREST [None]
  - CYSTITIS HAEMORRHAGIC [None]
  - EYE DISORDER [None]
  - GRAFT VERSUS HOST DISEASE [None]
  - HYPOTENSION [None]
  - INFECTION [None]
  - MENTAL STATUS CHANGES [None]
